FAERS Safety Report 5800303-X (Version None)
Quarter: 2008Q3

REPORT INFORMATION
  Report Type: 
  Country: None (occurrence: None)
  Receive Date: 20080703
  Receipt Date: 20080625
  Transmission Date: 20090109
  Serious: Yes (Death, Hospitalization)
  Sender: FDA-Public Use
  Company Number: JP-AVENTIS-200811488JP

PATIENT
  Age: 76 Year
  Sex: Female
  Weight: 41.7 kg

DRUGS (9)
  1. TAXOTERE [Suspect]
     Indication: BREAST CANCER
     Route: 041
     Dates: start: 20080401, end: 20080401
  2. FARMORUBICIN                       /00699301/ [Concomitant]
     Indication: BREAST CANCER
     Dates: start: 20080108, end: 20080108
  3. FARMORUBICIN                       /00699301/ [Concomitant]
     Dates: start: 20080129, end: 20080311
  4. ENDOXAN [Concomitant]
     Indication: BREAST CANCER
     Dates: start: 20080108, end: 20080311
  5. FLUOROURACIL [Concomitant]
     Indication: BREAST CANCER
     Dates: start: 20080108, end: 20080108
  6. KYTRIL                             /01178102/ [Concomitant]
     Indication: PREMEDICATION
     Route: 041
     Dates: start: 20080401, end: 20080401
  7. DECADRON PHOSPHATE [Concomitant]
     Indication: PREMEDICATION
     Route: 041
     Dates: start: 20080401, end: 20080401
  8. DEXAMETHASONE TAB [Concomitant]
     Route: 048
     Dates: start: 20080401, end: 20080403
  9. KYTRIL                             /01178101/ [Concomitant]
     Route: 048
     Dates: start: 20080401, end: 20080406

REACTIONS (2)
  - FEBRILE NEUTROPENIA [None]
  - INTERSTITIAL LUNG DISEASE [None]
